FAERS Safety Report 19464045 (Version 1)
Quarter: 2021Q2

REPORT INFORMATION
  Report Type: Spontaneous
  Country: JP (occurrence: JP)
  Receive Date: 20210625
  Receipt Date: 20210625
  Transmission Date: 20210717
  Serious: Yes (Death, Other)
  Sender: FDA-Public Use
  Company Number: NVSJ2021JP002721

PATIENT
  Age: 85 Year
  Sex: Female

DRUGS (3)
  1. PAZOPANIB [Suspect]
     Active Substance: PAZOPANIB
     Dosage: 200 MG
     Route: 065
  2. PAZOPANIB [Suspect]
     Active Substance: PAZOPANIB
     Dosage: 200 MG, QOD
     Route: 065
  3. PAZOPANIB [Suspect]
     Active Substance: PAZOPANIB
     Indication: ANGIOSARCOMA
     Dosage: 400 MG
     Route: 048

REACTIONS (9)
  - Anaemia [Fatal]
  - Malignant neoplasm progression [Fatal]
  - Intestinal metastasis [Fatal]
  - Abdominal distension [Fatal]
  - Platelet count decreased [Unknown]
  - Malaise [Unknown]
  - Angiosarcoma recurrent [Fatal]
  - Pyelonephritis [Unknown]
  - Decreased appetite [Unknown]
